FAERS Safety Report 16190989 (Version 3)
Quarter: 2022Q1

REPORT INFORMATION
  Report Type: Spontaneous
  Country: GB (occurrence: GB)
  Receive Date: 20190412
  Receipt Date: 20220130
  Transmission Date: 20220424
  Serious: Yes (Other)
  Sender: FDA-Public Use
  Company Number: GB-JAZZ-2019-GB-003886

PATIENT
  Age: 2 Year
  Sex: Male

DRUGS (2)
  1. DEFITELIO [Suspect]
     Active Substance: DEFIBROTIDE SODIUM
     Indication: Prophylaxis
     Dosage: UNKNOWN DOSE
  2. URSODIOL [Concomitant]
     Active Substance: URSODIOL
     Indication: Prophylaxis

REACTIONS (4)
  - Venoocclusive disease [Recovering/Resolving]
  - Device related sepsis [Unknown]
  - Adenovirus infection [Unknown]
  - Off label use [Unknown]
